FAERS Safety Report 5564183-2 (Version None)
Quarter: 2007Q4

REPORT INFORMATION
  Report Type: 
  Country: None (occurrence: None)
  Receive Date: 20071217
  Receipt Date: 20071207
  Transmission Date: 20080405
  Serious: Yes (Other)
  Sender: FDA-Public Use
  Company Number: GB-ABBOTT-07P-167-0426274-00

PATIENT
  Sex: Female
  Weight: 79 kg

DRUGS (4)
  1. HUMIRA [Suspect]
     Indication: RHEUMATOID ARTHRITIS
     Route: 058
     Dates: start: 20070301, end: 20071122
  2. METHOTREXATE [Concomitant]
     Indication: RHEUMATOID ARTHRITIS
     Route: 048
  3. FOLIC ACID [Concomitant]
     Indication: RHEUMATOID ARTHRITIS
     Route: 048
  4. ARTHROTEC [Concomitant]
     Indication: PAIN

REACTIONS (6)
  - ANAL ULCER [None]
  - INTESTINAL MASS [None]
  - METASTASES TO LYMPH NODES [None]
  - METASTATIC SQUAMOUS CELL CARCINOMA [None]
  - PROCTALGIA [None]
  - RECTAL CANCER [None]
